FAERS Safety Report 5613196-0 (Version None)
Quarter: 2008Q1

REPORT INFORMATION
  Report Type: 
  Country: None (occurrence: None)
  Receive Date: 20080129
  Receipt Date: 20080111
  Transmission Date: 20080703
  Serious: Yes (Hospitalization)
  Sender: FDA-Public Use
  Company Number: 2008AL000412

PATIENT
  Age: 14 Year

DRUGS (2)
  1. INFANTS' APAP DROPS (ACETAMINOPHEN) (ALPHARMA) (INFANTS' APAP DROPS (A [Suspect]
     Indication: INTENTIONAL OVERDOSE
     Dosage: 2000 MG;X1
  2. BRUFEN [Concomitant]

REACTIONS (2)
  - OVERDOSE [None]
  - VISION BLURRED [None]
